FAERS Safety Report 19844787 (Version 1)
Quarter: 2021Q3

REPORT INFORMATION
  Report Type: Report from Study
  Country: US (occurrence: US)
  Receive Date: 20210917
  Receipt Date: 20210917
  Transmission Date: 20211014
  Serious: Yes (Hospitalization, Other)
  Sender: FDA-Public Use
  Company Number: US-JNJFOC-20210858722

PATIENT
  Age: 11 Year
  Sex: Female
  Weight: 37.1 kg

DRUGS (11)
  1. TYLENOL [Concomitant]
     Active Substance: ACETAMINOPHEN
  2. KENALOG [Concomitant]
     Active Substance: TRIAMCINOLONE ACETONIDE
  3. TAMIFLU [Concomitant]
     Active Substance: OSELTAMIVIR PHOSPHATE
  4. AMOXICILLIN. [Concomitant]
     Active Substance: AMOXICILLIN
  5. IBUPROFEN. [Concomitant]
     Active Substance: IBUPROFEN
  6. MOTRIN [Concomitant]
     Active Substance: IBUPROFEN
  7. GOLIMUMAB [Suspect]
     Active Substance: GOLIMUMAB
     Indication: JUVENILE IDIOPATHIC ARTHRITIS
     Route: 042
     Dates: end: 20210701
  8. FLUOCINOLONE [Concomitant]
     Active Substance: FLUOCINOLONE
  9. TRIAMCINOLONE [Concomitant]
     Active Substance: TRIAMCINOLONE
  10. MUCINEX [Concomitant]
     Active Substance: GUAIFENESIN
  11. ROCEPHINE [Concomitant]
     Active Substance: CEFTRIAXONE SODIUM

REACTIONS (1)
  - Appendicitis [Recovered/Resolved]

NARRATIVE: CASE EVENT DATE: 20210824
